FAERS Safety Report 8608758-2 (Version None)
Quarter: 2012Q3

REPORT INFORMATION
  Report Type: 
  Country: None (occurrence: None)
  Receive Date: 20120821
  Receipt Date: 20120806
  Transmission Date: 20120928
  Serious: Yes (Hospitalization)
  Sender: FDA-Public Use
  Company Number: US-ARROW-2012-14250

PATIENT
  Age: 82 Year
  Sex: Female

DRUGS (2)
  1. TRAMADOL HYDROCHLORIDE [Suspect]
     Indication: PAIN
     Dosage: UNK
     Route: 048
  2. LINEZOLID [Suspect]
     Indication: INFECTION
     Dosage: UNK
     Route: 048

REACTIONS (3)
  - SEROTONIN SYNDROME [None]
  - DRUG INTERACTION [None]
  - GRAND MAL CONVULSION [None]
